FAERS Safety Report 9572594 (Version 2)
Quarter: 2013Q4

REPORT INFORMATION
  Report Type: Spontaneous
  Country: US (occurrence: US)
  Receive Date: 20131001
  Receipt Date: 20131001
  Transmission Date: 20140711
  Serious: No
  Sender: FDA-Public Use
  Company Number: US-PURDUE-USA-2012-0081012

PATIENT
  Sex: Male

DRUGS (1)
  1. BUTRANS [Suspect]
     Indication: PAIN
     Dosage: 20 MG, Q1H
     Route: 062
     Dates: start: 20111222

REACTIONS (3)
  - Wrong technique in drug usage process [Unknown]
  - Pain [Unknown]
  - Product adhesion issue [Unknown]
